FAERS Safety Report 4965523-5 (Version None)
Quarter: 2006Q1

REPORT INFORMATION
  Report Type: 
  Country: None (occurrence: None)
  Receive Date: 20060201
  Receipt Date: 20051207
  Transmission Date: 20060701
  Serious: No
  Sender: FDA-Public Use
  Company Number: 2005PV005560

PATIENT
  Age: 58 Year
  Sex: Female
  Weight: 92.9874 kg

DRUGS (3)
  1. BYETTA [Suspect]
     Indication: DIABETES MELLITUS NON-INSULIN-DEPENDENT
     Dosage: SEE IMAGE
     Route: 058
     Dates: start: 20050901, end: 20051001
  2. BYETTA [Suspect]
     Indication: DIABETES MELLITUS NON-INSULIN-DEPENDENT
     Dosage: SEE IMAGE
     Route: 058
     Dates: start: 20051001
  3. GLUCOPHAGE ^BRISTOL-MYERS SQUIB^ [Concomitant]

REACTIONS (6)
  - DIARRHOEA [None]
  - DYSPEPSIA [None]
  - HYPERCHLORHYDRIA [None]
  - INJECTION SITE ERYTHEMA [None]
  - NAUSEA [None]
  - SINUS HEADACHE [None]
